FAERS Safety Report 5660705-1 (Version None)
Quarter: 2008Q1

REPORT INFORMATION
  Report Type: 
  Country: None (occurrence: None)
  Receive Date: 20080311
  Receipt Date: 20080306
  Transmission Date: 20080703
  Serious: Yes (Other)
  Sender: FDA-Public Use
  Company Number: IT-JNJFOC-20080301156

PATIENT
  Age: 88 Year
  Sex: Female

DRUGS (7)
  1. TAVANIC [Suspect]
     Indication: BRONCHITIS
     Route: 048
  2. SPIRIVA [Concomitant]
     Route: 065
  3. ALIFLUS DISKUS [Concomitant]
     Route: 065
  4. KANRENOL [Concomitant]
     Route: 048
  5. FUROSEMIDE [Concomitant]
     Route: 065
  6. ANSIMAR [Concomitant]
     Route: 065
  7. ASPIRIN [Concomitant]
     Route: 065

REACTIONS (3)
  - AGGRESSION [None]
  - DELIRIUM [None]
  - HALLUCINATION [None]
